FAERS Safety Report 6474399-9 (Version None)
Quarter: 2009Q4

REPORT INFORMATION
  Report Type: 
  Country: None (occurrence: None)
  Receive Date: 20091204
  Receipt Date: 20091124
  Transmission Date: 20100525
  Serious: Yes (Hospitalization, Other)
  Sender: FDA-Public Use
  Company Number: US-AMGEN-QUU373642

PATIENT
  Sex: Female

DRUGS (20)
  1. ENBREL [Suspect]
     Indication: JUVENILE ARTHRITIS
     Route: 058
     Dates: start: 20051121
  2. ENBREL [Suspect]
     Indication: PSORIATIC ARTHROPATHY
  3. NEXIUM [Concomitant]
  4. ATIVAN [Concomitant]
  5. SINGULAIR [Concomitant]
  6. LAMICTAL [Concomitant]
  7. TRAZODONE HCL [Concomitant]
  8. TRILEPTAL [Concomitant]
  9. LISINOPRIL [Concomitant]
  10. TYLENOL (CAPLET) [Concomitant]
  11. SIMVASTATIN [Concomitant]
  12. CLINDAMYCIN [Concomitant]
  13. LITHIUM [Concomitant]
  14. POLYSTYRENE SULFONATE [Concomitant]
  15. METOPROLOL TARTRATE [Concomitant]
  16. ZYPREXA [Concomitant]
  17. HYDROCHLOROTHIAZIDE [Concomitant]
  18. RISPERIDONE [Concomitant]
  19. HYDROMORPHONE HYDROCHLORIDE [Concomitant]
  20. SPIRONOLACTONE [Concomitant]

REACTIONS (40)
  - BIPOLAR I DISORDER [None]
  - CHEST PAIN [None]
  - CONSTIPATION [None]
  - DIZZINESS [None]
  - DRUG HYPERSENSITIVITY [None]
  - DYSPNOEA [None]
  - EAR PAIN [None]
  - EYE PAIN [None]
  - FALL [None]
  - FATIGUE [None]
  - FEELING OF BODY TEMPERATURE CHANGE [None]
  - FIBROMYALGIA [None]
  - FOOT DEFORMITY [None]
  - GASTROOESOPHAGEAL REFLUX DISEASE [None]
  - HEADACHE [None]
  - HYPOAESTHESIA [None]
  - LYMPHADENOPATHY [None]
  - MELANOCYTIC NAEVUS [None]
  - MENORRHAGIA [None]
  - MULTIPLE INJURIES [None]
  - MUSCULOSKELETAL PAIN [None]
  - NAUSEA [None]
  - NEPHROLITHIASIS [None]
  - OCULAR HYPERAEMIA [None]
  - OEDEMA PERIPHERAL [None]
  - OROPHARYNGEAL PAIN [None]
  - OSTEONECROSIS [None]
  - OSTEOPENIA [None]
  - POOR QUALITY SLEEP [None]
  - PSORIATIC ARTHROPATHY [None]
  - RASH [None]
  - RASH PRURITIC [None]
  - RENAL FAILURE CHRONIC [None]
  - ROAD TRAFFIC ACCIDENT [None]
  - SEASONAL ALLERGY [None]
  - SYNCOPE [None]
  - THIRST [None]
  - TOOTH ABSCESS [None]
  - TREMOR [None]
  - WEIGHT FLUCTUATION [None]
